FAERS Safety Report 6892185-2 (Version None)
Quarter: 2010Q3

REPORT INFORMATION
  Report Type: 
  Country: None (occurrence: None)
  Receive Date: 20100731
  Receipt Date: 20080227
  Transmission Date: 20110219
  Serious: Yes (Hospitalization, Other)
  Sender: FDA-Public Use
  Company Number: US-PFIZER INC-2008000467

PATIENT
  Sex: Male
  Weight: 83.5 kg

DRUGS (8)
  1. CAMPTOSAR [Suspect]
     Indication: COLON CANCER
     Route: 042
     Dates: start: 20070401
  2. CAMPTOSAR [Suspect]
     Dosage: DOSE REDUCED OF 25 %
     Route: 042
     Dates: start: 20070619, end: 20071024
  3. CAMPTOSAR [Suspect]
     Route: 042
     Dates: end: 20071201
  4. ATROPINE [Concomitant]
  5. SIMVASTATIN [Concomitant]
  6. XELODA [Concomitant]
  7. OXALIPLATIN [Concomitant]
  8. AVASTIN [Concomitant]

REACTIONS (12)
  - ANAEMIA [None]
  - COLITIS [None]
  - DEHYDRATION [None]
  - DIARRHOEA [None]
  - FLUID RETENTION [None]
  - HEPATIC FUNCTION ABNORMAL [None]
  - HYPOKALAEMIA [None]
  - HYPOMAGNESAEMIA [None]
  - HYPOVOLAEMIA [None]
  - METABOLIC ACIDOSIS [None]
  - RENAL FAILURE ACUTE [None]
  - THROMBOCYTOPENIA [None]
